FAERS Safety Report 22827360 (Version 4)
Quarter: 2023Q4

REPORT INFORMATION
  Report Type: Spontaneous
  Country: JP (occurrence: JP)
  Receive Date: 20230816
  Receipt Date: 20231018
  Transmission Date: 20240109
  Serious: Yes (Death, Life-Threatening, Other)
  Sender: FDA-Public Use
  Company Number: JP-BAXTER-2023BAX028095

PATIENT
  Age: 71 Year
  Sex: Female

DRUGS (13)
  1. DOXIL [Suspect]
     Active Substance: DOXORUBICIN HYDROCHLORIDE
     Indication: Ovarian cancer recurrent
     Dosage: 3 CYCLES OF LIPOSOMAL DOXORUBICIN + BEV THERAPY (LIPOSOMAL DOXORUBICIN 40 MG/M2 DAILY)
     Route: 065
     Dates: start: 20191107
  2. DOXIL [Suspect]
     Active Substance: DOXORUBICIN HYDROCHLORIDE
     Indication: Ovarian cancer stage III
  3. BEVACIZUMAB [Suspect]
     Active Substance: BEVACIZUMAB
     Indication: Ovarian cancer stage III
     Dosage: 3 CYCLES OF LIPOSOMAL DOXORUBICIN + BEV THERAPY (BEV 15 MG/KG)
     Route: 065
  4. BEVACIZUMAB [Suspect]
     Active Substance: BEVACIZUMAB
     Indication: Ovarian cancer recurrent
     Dosage: BEV 15 MG/KG WAS PERFORMED FOR 6 CYCLES
     Route: 065
  5. BEVACIZUMAB [Suspect]
     Active Substance: BEVACIZUMAB
     Dosage: THREE CYCLES OF TC + BEV THERAPY (1 CYCLE AFTER SURGERY WITHOUT BEV)
     Route: 065
  6. BEVACIZUMAB [Suspect]
     Active Substance: BEVACIZUMAB
     Dosage: 6 CYCLES OF BEV MONOTHERAPY (BEV 15 MG/KG)
     Route: 065
  7. BEVACIZUMAB [Suspect]
     Active Substance: BEVACIZUMAB
     Dosage: GEMCITABINE + BEV THERAPY (BEV 15 MG/KG) WAS ADMINISTERED FOR 3 CYCLES
     Route: 065
  8. PACLITAXEL [Suspect]
     Active Substance: PACLITAXEL
     Indication: Ovarian cancer stage III
     Dosage: (TC + BEV) THERAPY (PTX 175 MG/M2) WAS PERFORMED FOR 6 CYCLES
     Route: 065
  9. PACLITAXEL [Suspect]
     Active Substance: PACLITAXEL
     Indication: Ovarian cancer recurrent
     Dosage: THREE CYCLES OF TC + BEV THERAPY (1 CYCLE AFTER SURGERY WITHOUT BEV)
     Route: 065
  10. CARBOPLATIN [Suspect]
     Active Substance: CARBOPLATIN
     Indication: Ovarian cancer stage III
     Dosage: (TC + BEV) THERAPY, CBDCA AUC6 WAS PERFORMED FOR 6 CYCLES
     Route: 065
  11. CARBOPLATIN [Suspect]
     Active Substance: CARBOPLATIN
     Indication: Ovarian cancer recurrent
     Dosage: THREE CYCLES OF TC + BEV THERAPY (1 CYCLE AFTER SURGERY WITHOUT BEV)
     Route: 065
  12. GEMCITABINE [Suspect]
     Active Substance: GEMCITABINE
     Indication: Ovarian cancer stage III
     Dosage: GEMCITABINE + BEV THERAPY (GEM 1,000 MG/M2) WAS ADMINISTERED FOR 3 CYCLES
     Route: 065
  13. GEMCITABINE [Suspect]
     Active Substance: GEMCITABINE
     Indication: Ovarian cancer recurrent

REACTIONS (3)
  - Acute myeloid leukaemia [Fatal]
  - Septic shock [Fatal]
  - Myelodysplastic syndrome [Unknown]

NARRATIVE: CASE EVENT DATE: 20200312
